FAERS Safety Report 23236238 (Version 1)
Quarter: 2023Q4

REPORT INFORMATION
  Report Type: Spontaneous
  Country: FR (occurrence: FR)
  Receive Date: 20231128
  Receipt Date: 20231128
  Transmission Date: 20240110
  Serious: Yes (Other)
  Sender: FDA-Public Use
  Company Number: FR-AFSSAPS-AM2023000710

PATIENT
  Age: 52 Year
  Sex: Male
  Weight: 75 kg

DRUGS (16)
  1. NOREPINEPHRINE [Suspect]
     Active Substance: NOREPINEPHRINE
     Indication: Product used for unknown indication
     Dosage: 0.89 MILLIGRAM, IN TOTAL
     Route: 040
     Dates: start: 20211128, end: 20211128
  2. ACETAMINOPHEN [Suspect]
     Active Substance: ACETAMINOPHEN
     Indication: Pain
     Dosage: 1 GRAM, IN TOTAL
     Route: 040
     Dates: start: 20211128
  3. EPHEDRINE [Suspect]
     Active Substance: EPHEDRINE
     Indication: Product used for unknown indication
     Dosage: 9 MILLIGRAM, IN TOTAL
     Route: 040
     Dates: start: 20211128, end: 20211128
  4. THIOPENTAL [Suspect]
     Active Substance: THIOPENTAL
     Indication: General anaesthesia
     Dosage: 500 MILLIGRAM, IN TOTAL
     Route: 040
     Dates: start: 20211128, end: 20211128
  5. TRAMADOL [Suspect]
     Active Substance: TRAMADOL\TRAMADOL HYDROCHLORIDE
     Indication: Pain
     Dosage: 100 MILLIGRAM, IN TOTAL
     Route: 040
     Dates: start: 20211128, end: 20211128
  6. SUFENTANIL [Suspect]
     Active Substance: SUFENTANIL
     Indication: General anaesthesia
     Dosage: 10 MCG, IN TOTAL
     Route: 040
     Dates: start: 20211128, end: 20211128
  7. CEFAZOLIN [Suspect]
     Active Substance: CEFAZOLIN
     Indication: Antibiotic prophylaxis
     Dosage: 2 GRAM, IN TOTAL
     Route: 040
     Dates: start: 20211128, end: 20211128
  8. METHYLPREDNISOLONE [Suspect]
     Active Substance: METHYLPREDNISOLONE
     Indication: Cerebral oedema management
     Dosage: 120 MILLIGRAM, DAILY
     Route: 040
     Dates: start: 20211128
  9. CISATRACURIUM [Suspect]
     Active Substance: CISATRACURIUM
     Indication: General anaesthesia
     Dosage: 10 MILLIGRAM, IN TOTAL
     Route: 040
     Dates: start: 20211128, end: 20211128
  10. MANNITOL [Suspect]
     Active Substance: MANNITOL
     Indication: Cerebral oedema management
     Dosage: 200 MILLILITER, IN TOTAL
     Route: 040
     Dates: start: 20211128, end: 20211128
  11. EPINEPHRINE\LIDOCAINE [Suspect]
     Active Substance: EPINEPHRINE\LIDOCAINE
     Indication: Product used for unknown indication
     Dosage: UNK
     Route: 065
     Dates: start: 20211128, end: 20211128
  12. HYDROCHLOROTHIAZIDE [Concomitant]
     Active Substance: HYDROCHLOROTHIAZIDE
     Indication: Product used for unknown indication
     Dosage: UNK
     Route: 065
  13. IRBESARTAN [Concomitant]
     Active Substance: IRBESARTAN
     Indication: Product used for unknown indication
     Dosage: UNK
     Route: 065
  14. LOVENOX [Concomitant]
     Active Substance: ENOXAPARIN SODIUM
     Indication: Product used for unknown indication
     Dosage: UNK
     Route: 065
  15. MEDROL [Concomitant]
     Active Substance: METHYLPREDNISOLONE
     Indication: Product used for unknown indication
     Dosage: UNK
     Route: 065
  16. PANTOPRAZOLE [Concomitant]
     Active Substance: PANTOPRAZOLE
     Indication: Product used for unknown indication
     Dosage: UNK
     Route: 065

REACTIONS (1)
  - Rash [Recovered/Resolved]

NARRATIVE: CASE EVENT DATE: 20211128
